FAERS Safety Report 9646087 (Version 1)
Quarter: 2013Q4

REPORT INFORMATION
  Report Type: Spontaneous
  Country: US (occurrence: None)
  Receive Date: 20131023
  Receipt Date: 20131023
  Transmission Date: 20140711
  Serious: Yes (Hospitalization, Other)
  Sender: FDA-Public Use
  Company Number: 2013US00728

PATIENT
  Age: 48 Year
  Sex: Male

DRUGS (2)
  1. LAMOTRIGINE (LAMOTRIGINE) TABLET [Suspect]
  2. TOPIRAMATE (TOPIRAMATE) [Concomitant]

REACTIONS (3)
  - Incorrect dose administered [None]
  - Confusional state [None]
  - Toxicity to various agents [None]
